FAERS Safety Report 7592055-0 (Version None)
Quarter: 2011Q2

REPORT INFORMATION
  Report Type: 
  Country: None (occurrence: None)
  Receive Date: 20110628
  Receipt Date: 20110622
  Transmission Date: 20111010
  Serious: Yes (Hospitalization)
  Sender: FDA-Public Use
  Company Number: 2011SP024422

PATIENT
  Age: 75 Year
  Sex: Female
  Weight: 75 kg

DRUGS (7)
  1. TEMOZOLOMIDE [Suspect]
     Indication: GLIOBLASTOMA
  2. LEVOTHYROXINE SODIUM [Concomitant]
  3. KEPPRA [Concomitant]
  4. DINTOINA [Concomitant]
  5. BISOPROLOL FUMARATE [Concomitant]
  6. LECARDIP [Concomitant]
  7. DEXAMETHASONE SODIUM PHOSPHATE [Concomitant]

REACTIONS (2)
  - URINARY TRACT INFECTION [None]
  - PNEUMONIA [None]
